FAERS Safety Report 8831922 (Version 1)
Quarter: 2012Q4

REPORT INFORMATION
  Report Type: Report from Study
  Country: JP (occurrence: JP)
  Receive Date: 20121008
  Receipt Date: 20121008
  Transmission Date: 20130627
  Serious: Yes (Death)
  Sender: FDA-Public Use
  Company Number: JP-ELI_LILLY_AND_COMPANY-JP201201005806

PATIENT
  Sex: Female

DRUGS (3)
  1. TERIPARATIDE [Suspect]
     Indication: OSTEOPOROSIS
     Dosage: 20 ug, qd
     Route: 058
     Dates: start: 20110218, end: 20120731
  2. TEGRETOL [Concomitant]
     Indication: EPILEPSY
     Dosage: UNK
     Route: 065
     Dates: end: 20110905
  3. EBRANTIL [Concomitant]
     Indication: DYSURIA
     Dosage: UNK
     Route: 065
     Dates: end: 20111005

REACTIONS (1)
  - Marasmus [Fatal]
